FAERS Safety Report 7950619-6 (Version None)
Quarter: 2011Q4

REPORT INFORMATION
  Report Type: 
  Country: None (occurrence: None)
  Receive Date: 20111130
  Receipt Date: 20111122
  Transmission Date: 20120403
  Serious: Yes (Death, Hospitalization, Other)
  Sender: FDA-Public Use
  Company Number: GB-ROCHE-GNE322629

PATIENT
  Sex: Female

DRUGS (19)
  1. LEVOTHYROXINE SODIUM [Concomitant]
  2. ASPIRIN [Concomitant]
  3. LIDOCAINE [Concomitant]
  4. DEXTRAN INJ [Concomitant]
  5. ACETAMINOPHEN [Concomitant]
  6. POLYETHYLENE GLYCOL [Concomitant]
  7. OXYCONTIN [Concomitant]
  8. QUININE SULFATE [Concomitant]
  9. OMEPRAZOLE [Concomitant]
  10. IRBESARTAN [Concomitant]
  11. HYPROMELLOSE [Concomitant]
  12. LUCENTIS [Suspect]
     Indication: PRODUCT USED FOR UNKNOWN INDICATION
     Route: 050
     Dates: start: 20091231
  13. CITALOPRAM [Concomitant]
  14. PIROXICAM [Concomitant]
  15. SIMVASTATIN [Concomitant]
  16. LACTULOSE [Concomitant]
  17. CARMELLOSE SODIUM [Concomitant]
  18. IBANDRONATE SODIUM [Concomitant]
  19. PREDNISOLONE [Concomitant]

REACTIONS (9)
  - OSTEOPOROSIS [None]
  - RENAL FAILURE ACUTE [None]
  - FALL [None]
  - LUMBAR VERTEBRAL FRACTURE [None]
  - RESPIRATORY FAILURE [None]
  - ATRIAL FIBRILLATION [None]
  - PNEUMONIA [None]
  - DIVERTICULUM [None]
  - AORTIC VALVE INCOMPETENCE [None]
